FAERS Safety Report 8904118 (Version 2)
Quarter: 2012Q4

REPORT INFORMATION
  Report Type: 
  Country: DE (occurrence: DE)
  Receive Date: 20121112
  Receipt Date: 20121128
  Transmission Date: 20130627
  Serious: Yes (Death, Other)
  Sender: FDA-Public Use
  Company Number: DE-ALEXION PHARMACEUTICALS INC.-A201202099

PATIENT
  Age: 42 Year
  Sex: Female

DRUGS (2)
  1. SOLIRIS 300MG [Suspect]
     Indication: PAROXYSMAL NOCTURNAL HAEMOGLOBINURIA
     Dosage: 600 mg, qw
     Route: 042
  2. SOLIRIS 300MG [Suspect]
     Dosage: 900 mg, q2w
     Route: 042

REACTIONS (8)
  - Zygomycosis [Fatal]
  - Stem cell transplant [Unknown]
  - Myelodysplastic syndrome [Unknown]
  - Therapeutic response decreased [Unknown]
  - Blood product transfusion dependent [Unknown]
  - Serum ferritin increased [Unknown]
  - Transferrin saturation increased [Unknown]
  - Haemoglobin decreased [Unknown]
